FAERS Safety Report 11269721 (Version 1)
Quarter: 2015Q3

REPORT INFORMATION
  Report Type: Spontaneous
  Country: US (occurrence: US)
  Receive Date: 20150714
  Receipt Date: 20150714
  Transmission Date: 20151125
  Serious: Yes (Hospitalization, Other)
  Sender: FDA-Public Use
  Company Number: US-PFIZER INC-2015229210

PATIENT
  Age: 16 Year
  Sex: Female

DRUGS (4)
  1. PHENYTOIN. [Suspect]
     Active Substance: PHENYTOIN
     Indication: SEIZURE
     Dosage: 400 MG/DAY
  2. PHENYTOIN. [Suspect]
     Active Substance: PHENYTOIN
     Dosage: BETWEEN 300 TO 1000 MG/DAY
  3. PHENYTOIN. [Suspect]
     Active Substance: PHENYTOIN
     Dosage: 300 MG/DAY
  4. MEPHOBARBITAL. [Suspect]
     Active Substance: MEPHOBARBITAL
     Indication: SEIZURE
     Dosage: 60 MG/DAY

REACTIONS (7)
  - Neuropathy peripheral [Unknown]
  - Gingival hyperplasia [Unknown]
  - Cerebellar atrophy [Not Recovered/Not Resolved]
  - Conversion disorder [Unknown]
  - Toxicity to various agents [Not Recovered/Not Resolved]
  - Nervous system disorder [Not Recovered/Not Resolved]
  - Generalised tonic-clonic seizure [Unknown]
